FAERS Safety Report 8369022-2 (Version None)
Quarter: 2012Q2

REPORT INFORMATION
  Report Type: 
  Country: None (occurrence: None)
  Receive Date: 20120518
  Receipt Date: 20120511
  Transmission Date: 20120825
  Serious: No
  Sender: FDA-Public Use
  Company Number: US-PFIZER INC-2012102462

PATIENT
  Sex: Female
  Weight: 54.422 kg

DRUGS (4)
  1. PREMARIN [Suspect]
     Indication: VULVOVAGINAL DRYNESS
     Dosage: UNK , 2X/WEEK
     Route: 067
     Dates: end: 20120115
  2. PREMARIN [Suspect]
     Indication: ATROPHIC VULVOVAGINITIS
     Dosage: 1/2GM/WEEK
     Route: 067
     Dates: start: 20090101, end: 20120328
  3. LOSARTAN [Concomitant]
     Indication: BLOOD PRESSURE ABNORMAL
     Dosage: 100 MG, DAILY
  4. METOPROLOL [Concomitant]
     Indication: CARDIAC DISORDER
     Dosage: UNK, 2X/DAY (HALF TABLET OF 25 MG)
     Route: 048

REACTIONS (5)
  - VULVOVAGINAL PAIN [None]
  - DRUG HYPERSENSITIVITY [None]
  - URINARY INCONTINENCE [None]
  - VAGINAL OEDEMA [None]
  - VULVOVAGINAL SWELLING [None]
